FAERS Safety Report 21908317 (Version 2)
Quarter: 2023Q1

REPORT INFORMATION
  Report Type: Spontaneous
  Country: US (occurrence: US)
  Receive Date: 20230125
  Receipt Date: 20230210
  Transmission Date: 20230418
  Serious: Yes (Other)
  Sender: FDA-Public Use
  Company Number: US-EyePoint Pharmaceuticals, Inc.-US-EYP-23-00012

PATIENT
  Age: 72 Year
  Sex: Female

DRUGS (6)
  1. YUTIQ [Suspect]
     Active Substance: FLUOCINOLONE ACETONIDE
     Indication: Product used for unknown indication
     Dosage: LEFT EYE/OS
     Route: 031
     Dates: start: 20220606
  2. YUTIQ [Suspect]
     Active Substance: FLUOCINOLONE ACETONIDE
  3. OZURDEX [Concomitant]
     Active Substance: DEXAMETHASONE
     Indication: Cystoid macular oedema
     Dosage: IN BOTH EYES/OU
     Route: 031
  4. OZURDEX [Concomitant]
     Active Substance: DEXAMETHASONE
     Dosage: IN THE LEFT EYE/OS
     Route: 031
     Dates: end: 20220206
  5. OZURDEX [Concomitant]
     Active Substance: DEXAMETHASONE
     Dosage: IN THE LEFT EYE/OS
     Route: 031
     Dates: start: 20220915
  6. AZATHIOPRINE [Concomitant]
     Active Substance: AZATHIOPRINE
     Indication: Product used for unknown indication
     Route: 065

REACTIONS (3)
  - Retinal vein occlusion [Unknown]
  - Uveitis [Unknown]
  - Drug ineffective [Unknown]
